FAERS Safety Report 9478723 (Version 2)
Quarter: 2013Q3

REPORT INFORMATION
  Report Type: Spontaneous
  Country: RO (occurrence: None)
  Receive Date: 20130822
  Receipt Date: 20130906
  Transmission Date: 20140515
  Serious: Yes (Other)
  Sender: FDA-Public Use
  Company Number: AUR-APL-2013-06863

PATIENT
  Age: 60 Year
  Sex: Female

DRUGS (1)
  1. AMOXICILLIN+ CLAVULANIC ACID [Suspect]
     Indication: BRONCHITIS CHRONIC
     Dosage: STOPPED

REACTIONS (3)
  - Drug eruption [None]
  - Blood glucose increased [None]
  - Lipids increased [None]
